FAERS Safety Report 9383700 (Version 2)
Quarter: 2013Q3

REPORT INFORMATION
  Report Type: Spontaneous
  Country: IT (occurrence: IT)
  Receive Date: 20130704
  Receipt Date: 20130726
  Transmission Date: 20140515
  Serious: Yes (Other)
  Sender: FDA-Public Use
  Company Number: IT-JNJFOC-20130618650

PATIENT
  Age: 12 Year
  Sex: Male

DRUGS (6)
  1. REMICADE [Suspect]
     Indication: CROHN^S DISEASE
     Dosage: STRENGTH: 100 MG, DOSE 300 MG
     Route: 042
     Dates: start: 20111120
  2. REMICADE [Suspect]
     Indication: CROHN^S DISEASE
     Dosage: STRENGTH: 100 MG, DOSE 300 MG
     Route: 042
     Dates: start: 20130621, end: 20130621
  3. TRIMETON [Concomitant]
     Indication: PREMEDICATION
     Route: 042
     Dates: start: 20130626
  4. TRIMETON [Concomitant]
     Indication: PREMEDICATION
     Route: 042
  5. URBASON [Concomitant]
     Indication: PREMEDICATION
     Route: 042
     Dates: start: 20130626
  6. URBASON [Concomitant]
     Indication: PREMEDICATION
     Route: 042

REACTIONS (5)
  - Hypersensitivity [Recovered/Resolved]
  - Cough [Recovered/Resolved]
  - Conjunctivitis [Recovered/Resolved]
  - Oxygen saturation decreased [Recovered/Resolved]
  - Infusion related reaction [Recovered/Resolved]
